FAERS Safety Report 7972011-0 (Version None)
Quarter: 2011Q4

REPORT INFORMATION
  Report Type: 
  Country: None (occurrence: None)
  Receive Date: 20111212
  Receipt Date: 20111206
  Transmission Date: 20120403
  Serious: Yes (Death, Other)
  Sender: FDA-Public Use
  Company Number: US-ASTRAZENECA-2011SE35864

PATIENT
  Age: 27 Year
  Sex: Male

DRUGS (9)
  1. METHADONE HCL [Concomitant]
     Dates: start: 20110101
  2. SEROQUEL [Suspect]
     Indication: DEPRESSION
     Route: 048
  3. SEROQUEL [Suspect]
     Route: 048
  4. AMBIEN [Concomitant]
  5. SEROQUEL [Suspect]
     Indication: ANXIETY
     Route: 048
  6. REMERON [Concomitant]
  7. ZOLOFT [Concomitant]
  8. SEROQUEL [Suspect]
     Route: 048
  9. XANAX [Concomitant]

REACTIONS (3)
  - DRUG DOSE OMISSION [None]
  - COMPLETED SUICIDE [None]
  - OFF LABEL USE [None]
